FAERS Safety Report 6600423-6 (Version None)
Quarter: 2010Q1

REPORT INFORMATION
  Report Type: 
  Country: None (occurrence: None)
  Receive Date: 20100224
  Receipt Date: 20100217
  Transmission Date: 20100710
  Serious: Yes (Hospitalization, Other)
  Sender: FDA-Public Use
  Company Number: FR-ASTRAZENECA-2010SE07279

PATIENT
  Age: 31648 Day
  Sex: Female

DRUGS (8)
  1. SYMBICORT [Suspect]
     Indication: CHRONIC OBSTRUCTIVE PULMONARY DISEASE
     Dosage: 200/6 UG
     Route: 055
  2. BIPRETERAX [Suspect]
     Indication: HYPERTENSION
     Route: 048
     Dates: end: 20091020
  3. TOBRADEX [Suspect]
     Route: 047
     Dates: end: 20091020
  4. NEXIUM [Concomitant]
     Route: 048
  5. DIGOXIN [Concomitant]
     Indication: ARRHYTHMIA
     Route: 048
  6. CARDENSIEL [Concomitant]
     Indication: CARDIAC FAILURE
     Route: 048
  7. COUMADIN [Concomitant]
     Indication: CARDIAC DISORDER
     Route: 048
  8. AERIUS [Concomitant]
     Indication: HYPERSENSITIVITY
     Route: 048

REACTIONS (3)
  - ACUTE RESPIRATORY FAILURE [None]
  - CARDIAC FAILURE [None]
  - FLUID RETENTION [None]
